FAERS Safety Report 17162643 (Version 1)
Quarter: 2019Q4

REPORT INFORMATION
  Report Type: Spontaneous
  Country: FR (occurrence: FR)
  Receive Date: 20191217
  Receipt Date: 20191217
  Transmission Date: 20200122
  Serious: Yes (Other)
  Sender: FDA-Public Use
  Company Number: FR-CELLTRION INC.-2019FR027191

PATIENT

DRUGS (16)
  1. VITAMIN B9 [Concomitant]
     Dosage: 1, 2 DAYS
     Route: 042
  2. HYDROCORTISONE. [Concomitant]
     Active Substance: HYDROCORTISONE
     Dosage: 40 MG
     Route: 037
  3. L-ASPARAGINASE [Concomitant]
     Active Substance: ASPARAGINASE
     Indication: B-CELL TYPE ACUTE LEUKAEMIA
     Dosage: 6000 UI/M2 AT DAYS 8, 10, 12, 16, 18, 20, 22 AND 24
     Route: 065
  4. IRON [Concomitant]
     Active Substance: IRON
     Dosage: 1000 MILLIGRAM
     Route: 042
  5. CYTARABINE. [Concomitant]
     Active Substance: CYTARABINE
     Dosage: 40 MG
     Route: 037
  6. RITUXIMAB (UNKNOWN) [Suspect]
     Active Substance: RITUXIMAB
     Indication: B-CELL TYPE ACUTE LEUKAEMIA
     Dosage: 375 MG/M2, D1
     Route: 041
  7. PREDNISONE. [Suspect]
     Active Substance: PREDNISONE
     Dosage: 40 MG/M2, D1 TO D5
     Route: 065
  8. FILGRASTIM [Concomitant]
     Active Substance: FILGRASTIM
     Route: 042
  9. METHOTREXATE. [Concomitant]
     Active Substance: METHOTREXATE
     Dosage: 15 MG
     Route: 037
  10. VINCRISTINE [Suspect]
     Active Substance: VINCRISTINE
     Indication: B-CELL TYPE ACUTE LEUKAEMIA
     Dosage: 1.4 MG/M2 UP TO MAXIMUM 2MG (D1)
     Route: 065
  11. DARBEPOETIN ALFA [Concomitant]
     Active Substance: DARBEPOETIN ALFA
     Dosage: 1000 UG
     Route: 058
  12. CYCLOPHOSPHAMIDE. [Suspect]
     Active Substance: CYCLOPHOSPHAMIDE
     Indication: B-CELL TYPE ACUTE LEUKAEMIA
     Dosage: 750 MG/M2, D1
     Route: 065
  13. ROMIPLOSTIM [Concomitant]
     Active Substance: ROMIPLOSTIM
     Dosage: 1000 UG, 1/WEEK
     Route: 058
  14. PREDNISONE. [Suspect]
     Active Substance: PREDNISONE
     Indication: B-CELL TYPE ACUTE LEUKAEMIA
     Dosage: 60 MG/M2, PROPHASE
     Route: 065
  15. DOXORUBICIN [Suspect]
     Active Substance: DOXORUBICIN
     Indication: B-CELL TYPE ACUTE LEUKAEMIA
     Dosage: 50 MG/M2, D1
     Route: 065
  16. HEPARIN [Concomitant]
     Active Substance: HEPARIN SODIUM

REACTIONS (6)
  - Deep vein thrombosis [Unknown]
  - Anaemia [Unknown]
  - Headache [Unknown]
  - Escherichia bacteraemia [Unknown]
  - Dyspnoea [Unknown]
  - Product use in unapproved indication [Unknown]
